FAERS Safety Report 7611040-3 (Version None)
Quarter: 2011Q3

REPORT INFORMATION
  Report Type: 
  Country: None (occurrence: None)
  Receive Date: 20110715
  Receipt Date: 20110712
  Transmission Date: 20111222
  Serious: Yes (Other)
  Sender: FDA-Public Use
  Company Number: US-PFIZER INC-2011159891

PATIENT
  Sex: Female

DRUGS (1)
  1. LYRICA [Suspect]
     Indication: NEUROPATHY PERIPHERAL
     Dosage: 75 MG

REACTIONS (7)
  - DIARRHOEA [None]
  - FEELING ABNORMAL [None]
  - WEIGHT DECREASED [None]
  - NAUSEA [None]
  - DRUG INEFFECTIVE [None]
  - NIGHT SWEATS [None]
  - WEIGHT INCREASED [None]
